FAERS Safety Report 12406359 (Version 1)
Quarter: 2016Q2

REPORT INFORMATION
  Report Type: Spontaneous
  Country: IE (occurrence: IE)
  Receive Date: 20160526
  Receipt Date: 20160526
  Transmission Date: 20160815
  Serious: Yes (Other)
  Sender: FDA-Public Use
  Company Number: IE-ACTAVIS-2016-10557

PATIENT
  Sex: Male

DRUGS (1)
  1. CETRIZ [Suspect]
     Active Substance: CETIRIZINE HYDROCHLORIDE
     Indication: SEASONAL ALLERGY
     Dosage: 10 MG, DAILY
     Route: 048

REACTIONS (6)
  - Flushing [Recovered/Resolved]
  - Bradyphrenia [Recovered/Resolved]
  - Feeling hot [Recovered/Resolved]
  - Slow response to stimuli [Recovered/Resolved]
  - Paraesthesia [Recovered/Resolved]
  - Lethargy [Recovered/Resolved]

NARRATIVE: CASE EVENT DATE: 20160504
